FAERS Safety Report 14146034 (Version 1)
Quarter: 2017Q4

REPORT INFORMATION
  Report Type: Spontaneous
  Country: US (occurrence: US)
  Receive Date: 20171031
  Receipt Date: 20171031
  Transmission Date: 20180321
  Serious: No
  Sender: FDA-Public Use
  Company Number: US-009507513-1710USA003957

PATIENT
  Age: 15 Year
  Sex: Female

DRUGS (2)
  1. NEXPLANON [Suspect]
     Active Substance: ETONOGESTREL
     Indication: MENSTRUAL CYCLE MANAGEMENT
  2. NEXPLANON [Suspect]
     Active Substance: ETONOGESTREL
     Indication: CONTRACEPTION
     Dosage: 1 LEFT ARM IMPLANT, EVERY 4 YEARS
     Route: 059
     Dates: start: 20170719

REACTIONS (5)
  - Depression [Unknown]
  - Product use in unapproved indication [Unknown]
  - Menorrhagia [Unknown]
  - Mood swings [Unknown]
  - Product use issue [Unknown]

NARRATIVE: CASE EVENT DATE: 201707
